FAERS Safety Report 22186753 (Version 2)
Quarter: 2025Q2

REPORT INFORMATION
  Report Type: Spontaneous
  Country: US (occurrence: US)
  Receive Date: 20230407
  Receipt Date: 20250605
  Transmission Date: 20250717
  Serious: Yes (Congenital Anomaly)
  Sender: VERTEX
  Company Number: US-VERTEX PHARMACEUTICALS-2023-004964

PATIENT

DRUGS (1)
  1. TRIKAFTA [Suspect]
     Active Substance: ELEXACAFTOR\IVACAFTOR\TEZACAFTOR
     Indication: Cystic fibrosis
     Route: 048

REACTIONS (1)
  - Haemangioma congenital [Not Recovered/Not Resolved]
